FAERS Safety Report 8546791-X (Version None)
Quarter: 2012Q3

REPORT INFORMATION
  Report Type: 
  Country: None (occurrence: None)
  Receive Date: 20120727
  Receipt Date: 20120207
  Transmission Date: 20120928
  Serious: No
  Sender: FDA-Public Use
  Company Number: US-ASTRAZENECA-2012SE08300

PATIENT
  Age: 28 Year
  Sex: Female
  Weight: 83.5 kg

DRUGS (7)
  1. LAMOTRIGINE [Concomitant]
  2. FLAMECTINE [Concomitant]
  3. SEROQUEL [Suspect]
     Indication: AGGRESSION
     Route: 048
  4. PAROXETINE [Concomitant]
  5. SEROQUEL [Suspect]
     Route: 048
  6. SEROQUEL [Suspect]
     Route: 048
  7. TOPIRAMATE [Concomitant]

REACTIONS (5)
  - ANXIETY [None]
  - WEIGHT INCREASED [None]
  - OFF LABEL USE [None]
  - LETHARGY [None]
  - AGGRESSION [None]
